FAERS Safety Report 10223085 (Version 3)
Quarter: 2014Q3

REPORT INFORMATION
  Report Type: Report from Study
  Country: US (occurrence: US)
  Receive Date: 20140607
  Receipt Date: 20140707
  Transmission Date: 20150326
  Serious: Yes (Death)
  Sender: FDA-Public Use
  Company Number: PHEH2014US011383

PATIENT
  Age: 41 Year
  Sex: Female

DRUGS (7)
  1. GILENYA [Suspect]
     Active Substance: FINGOLIMOD HYDROCHLORIDE
     Indication: MULTIPLE SCLEROSIS
     Dosage: 0.5 MG, QD
     Route: 048
     Dates: start: 20110315
  2. COUMADINE [Concomitant]
     Active Substance: WARFARIN SODIUM
     Indication: DEEP VEIN THROMBOSIS
     Dates: start: 201204
  3. TOVIAZ [Concomitant]
     Active Substance: FESOTERODINE FUMARATE
  4. BACLOFEN. [Concomitant]
     Active Substance: BACLOFEN
  5. LEXAPRO [Concomitant]
     Active Substance: ESCITALOPRAM OXALATE
  6. CLONAZEPAM. [Concomitant]
     Active Substance: CLONAZEPAM
  7. SANCTURA [Concomitant]
     Active Substance: TROSPIUM CHLORIDE

REACTIONS (3)
  - Respiratory arrest [Fatal]
  - Cough [Unknown]
  - Cardiac failure [Fatal]

NARRATIVE: CASE EVENT DATE: 20140510
